FAERS Safety Report 5244531-3 (Version None)
Quarter: 2007Q1

REPORT INFORMATION
  Report Type: 
  Country: None (occurrence: None)
  Receive Date: 20070222
  Receipt Date: 20070212
  Transmission Date: 20070707
  Serious: Yes (Disabling)
  Sender: FDA-Public Use
  Company Number: AT-SANOFI-SYNTHELABO-A01200701536

PATIENT
  Age: 58 Year
  Sex: Female
  Weight: 65 kg

DRUGS (3)
  1. FLUOROURACIL [Suspect]
     Route: 042
  2. ELOXATIN [Suspect]
     Indication: COLON CANCER
     Route: 042
  3. CALCIUM FOLINATE [Suspect]
     Route: 042

REACTIONS (2)
  - DEMYELINATION [None]
  - PERIPHERAL SENSORY NEUROPATHY [None]
